FAERS Safety Report 7937422-8 (Version None)
Quarter: 2011Q4

REPORT INFORMATION
  Report Type: 
  Country: None (occurrence: None)
  Receive Date: 20111123
  Receipt Date: 20111114
  Transmission Date: 20120403
  Serious: Yes (Other)
  Sender: FDA-Public Use
  Company Number: US-BAYER-2011-110316

PATIENT
  Age: 28 Year
  Sex: Female

DRUGS (2)
  1. YAZ [Suspect]
     Dosage: UNK
     Dates: start: 20081001, end: 20100201
  2. YASMIN [Suspect]
     Dosage: UNK
     Dates: start: 20081001, end: 20100201

REACTIONS (3)
  - CHOLELITHIASIS [None]
  - INJURY [None]
  - PAIN [None]
